FAERS Safety Report 8833358 (Version 1)
Quarter: 2012Q4

REPORT INFORMATION
  Report Type: 
  Country: US (occurrence: US)
  Receive Date: 20121010
  Receipt Date: 20121010
  Transmission Date: 20130627
  Serious: No
  Sender: FDA-Public Use
  Company Number: US-TEVA-363574USA

PATIENT
  Sex: Female
  Weight: 61.29 kg

DRUGS (1)
  1. QNASL [Suspect]
     Dosage: 80 Microgram Daily; 160 mcg
     Route: 045

REACTIONS (1)
  - Headache [Not Recovered/Not Resolved]
